FAERS Safety Report 7642418-X (Version None)
Quarter: 2011Q3

REPORT INFORMATION
  Report Type: 
  Country: None (occurrence: None)
  Receive Date: 20110728
  Receipt Date: 20101123
  Transmission Date: 20111222
  Serious: No
  Sender: FDA-Public Use
  Company Number: US-MYLANLABS-2010S1018365

PATIENT
  Age: 66 Year
  Sex: Female

DRUGS (14)
  1. FUROSEMIDE [Concomitant]
  2. LEVOTHYROXINE SODIUM [Suspect]
     Route: 048
     Dates: start: 20101002, end: 20101002
  3. DIOVAN [Concomitant]
     Indication: CARDIAC DISORDER
  4. SOTALOL HCL [Concomitant]
     Indication: CARDIAC DISORDER
  5. LEVOTHYROXINE SODIUM [Concomitant]
  6. POTASSIUM [Concomitant]
  7. LEVOTHYROXINE SODIUM [Suspect]
     Indication: THYROID DISORDER
     Route: 048
     Dates: start: 20100910, end: 20100915
  8. LEVOTHYROXINE SODIUM [Suspect]
     Route: 048
     Dates: start: 20100101
  9. WARFARIN SODIUM [Concomitant]
  10. TRICOR [Concomitant]
     Indication: BLOOD CHOLESTEROL
  11. CLARITIN /00917501/ [Concomitant]
  12. DILTIAZEM CD [Concomitant]
  13. TAMOXIFEN CITRATE [Concomitant]
  14. WELCHOL [Concomitant]
     Indication: BLOOD CHOLESTEROL

REACTIONS (7)
  - DYSPNOEA [None]
  - THYROID FUNCTION TEST ABNORMAL [None]
  - MYALGIA [None]
  - HEART RATE IRREGULAR [None]
  - MENTAL IMPAIRMENT [None]
  - PAIN [None]
  - DIZZINESS [None]
